FAERS Safety Report 8978304 (Version 2)
Quarter: 2013Q1

REPORT INFORMATION
  Report Type: Spontaneous
  Country: JP (occurrence: JP)
  Receive Date: 20121221
  Receipt Date: 20130217
  Transmission Date: 20140127
  Serious: Yes (Disabling)
  Sender: FDA-Public Use
  Company Number: JP-009507513-1212JPN008491

PATIENT
  Age: 46 Year
  Sex: Female

DRUGS (2)
  1. RINDERON [Suspect]
     Dosage: UNK
     Dates: start: 200902, end: 200903
  2. PREDONINE [Suspect]
     Dosage: UNK
     Dates: start: 200310, end: 201103

REACTIONS (1)
  - Glaucoma [Unknown]
